FAERS Safety Report 8179534-2 (Version None)
Quarter: 2012Q1

REPORT INFORMATION
  Report Type: 
  Country: None (occurrence: None)
  Receive Date: 20120302
  Receipt Date: 20120227
  Transmission Date: 20120608
  Serious: No
  Sender: FDA-Public Use
  Company Number: US-PFIZER INC-2012052705

PATIENT
  Sex: Female

DRUGS (3)
  1. NORGESTREL AND ETHINYL ESTRADIOL [Suspect]
  2. NORGESTREL AND ETHINYL ESTRADIOL [Suspect]
  3. NORGESTREL AND ETHINYL ESTRADIOL [Suspect]

REACTIONS (1)
  - MENSTRUAL DISORDER [None]
